FAERS Safety Report 10269744 (Version 1)
Quarter: 2014Q2

REPORT INFORMATION
  Report Type: Spontaneous
  Country: GB (occurrence: None)
  Receive Date: 20140625
  Receipt Date: 20140625
  Transmission Date: 20141212
  Serious: Yes (Hospitalization, Other)
  Sender: FDA-Public Use
  Company Number: AUR-APL-2014-06612

PATIENT
  Age: 78 Year
  Sex: Female

DRUGS (2)
  1. CITALOPRAM [Suspect]
     Indication: DEPRESSION
     Route: 048
  2. KALMS (FERULA ASSAFOETIDA,GENTIANA LUTEA ROOT, HUMULUS LUPULUS, VALERIANA OFFICINALIS EXTRACT) [Concomitant]

REACTIONS (4)
  - Electrocardiogram QT prolonged [None]
  - Hypotension [None]
  - Sinus bradycardia [None]
  - Fall [None]
